FAERS Safety Report 14204868 (Version 1)
Quarter: 2017Q4

REPORT INFORMATION
  Report Type: Spontaneous
  Country: SG (occurrence: SG)
  Receive Date: 20171120
  Receipt Date: 20171120
  Transmission Date: 20180321
  Serious: Yes (Other)
  Sender: FDA-Public Use
  Company Number: SG-PFIZER INC-2017493406

PATIENT
  Age: 74 Year
  Sex: Female

DRUGS (2)
  1. CRIZOTINIB [Suspect]
     Active Substance: CRIZOTINIB
     Dosage: UNK
  2. CERITINIB [Suspect]
     Active Substance: CERITINIB
     Dosage: UNK

REACTIONS (2)
  - Renal impairment [Unknown]
  - Neoplasm progression [Unknown]
